FAERS Safety Report 12857875 (Version 1)
Quarter: 2016Q4

REPORT INFORMATION
  Report Type: Spontaneous
  Country: US (occurrence: US)
  Receive Date: 20161018
  Receipt Date: 20161018
  Transmission Date: 20170207
  Serious: No
  Sender: FDA-Public Use
  Company Number: US-SA-2015SA193526

PATIENT
  Sex: Female

DRUGS (6)
  1. LEMTRADA [Suspect]
     Active Substance: ALEMTUZUMAB
     Route: 041
     Dates: start: 20151103, end: 20151106
  2. TYLENOL [Concomitant]
     Active Substance: ACETAMINOPHEN
     Route: 048
     Dates: start: 20151102, end: 20151102
  3. BENADRYL [Concomitant]
     Active Substance: DIPHENHYDRAMINE HYDROCHLORIDE
     Route: 048
     Dates: start: 20151102, end: 20151102
  4. SOLU-MEDROL [Concomitant]
     Active Substance: METHYLPREDNISOLONE SODIUM SUCCINATE
     Route: 042
     Dates: start: 20151102, end: 20151102
  5. LEMTRADA [Suspect]
     Active Substance: ALEMTUZUMAB
     Route: 041
     Dates: start: 20151102, end: 20151102
  6. BENADRYL [Concomitant]
     Active Substance: DIPHENHYDRAMINE HYDROCHLORIDE
     Route: 042
     Dates: start: 20151102, end: 20151102

REACTIONS (7)
  - Sinus tachycardia [Not Recovered/Not Resolved]
  - Palpitations [Unknown]
  - Rash [Recovered/Resolved]
  - Heart rate irregular [Recovering/Resolving]
  - Bradycardia [Unknown]
  - Dizziness [Recovered/Resolved]
  - Infusion site pain [Unknown]

NARRATIVE: CASE EVENT DATE: 20151102
